FAERS Safety Report 7591108-0 (Version None)
Quarter: 2011Q3

REPORT INFORMATION
  Report Type: 
  Country: None (occurrence: None)
  Receive Date: 20110705
  Receipt Date: 20110623
  Transmission Date: 20111222
  Serious: Yes (Other)
  Sender: FDA-Public Use
  Company Number: FR-ASTRAZENECA-2011SE38682

PATIENT
  Age: 71 Year
  Sex: Male

DRUGS (3)
  1. RAMIPRIL [Concomitant]
     Indication: HYPERTENSION
  2. IRESSA [Suspect]
     Indication: BRONCHIAL CARCINOMA
     Route: 048
     Dates: start: 20110523, end: 20110622
  3. OXYCONTIN [Concomitant]
     Indication: PAIN

REACTIONS (1)
  - CYTOLYTIC HEPATITIS [None]
